FAERS Safety Report 5056438-5 (Version None)
Quarter: 2006Q3

REPORT INFORMATION
  Report Type: 
  Country: None (occurrence: None)
  Receive Date: 20060720
  Receipt Date: 20060714
  Transmission Date: 20061208
  Serious: Yes (Other)
  Sender: FDA-Public Use
  Company Number: US-SANOFI-SYNTHELABO-A03200604472

PATIENT
  Age: 90 Year
  Sex: Male

DRUGS (2)
  1. AMBIEN [Suspect]
     Indication: DRUG USE FOR UNKNOWN INDICATION
     Route: 048
     Dates: start: 20040101, end: 20040101
  2. AMBIEN [Suspect]
     Route: 048
     Dates: start: 20040101

REACTIONS (2)
  - FALL [None]
  - SKIN LACERATION [None]
